FAERS Safety Report 6814636-1 (Version None)
Quarter: 2010Q3

REPORT INFORMATION
  Report Type: 
  Country: None (occurrence: None)
  Receive Date: 20100702
  Receipt Date: 20100623
  Transmission Date: 20110219
  Serious: Yes (Other)
  Sender: FDA-Public Use
  Company Number: US-PFIZER INC-2009255265

PATIENT
  Sex: Male
  Weight: 127.89 kg

DRUGS (8)
  1. SUTENT [Suspect]
     Indication: METASTATIC RENAL CELL CARCINOMA
     Dosage: 50 MG, 1X/DAY (4/2 CYCLE)
     Route: 048
     Dates: start: 20090618
  2. ATENOLOL [Concomitant]
     Dosage: 100 MG, 1X/DAY
  3. DESVENLAFAXINE [Concomitant]
     Dosage: 50 MG, 1X/DAY
  4. VERAPAMIL HYDROCHLORIDE [Concomitant]
     Dosage: UNK
  5. LISINOPRIL [Concomitant]
     Dosage: UNK
  6. OMEPRAZOLE [Concomitant]
     Dosage: UNK
  7. DIAZEPAM [Concomitant]
     Dosage: UNK
  8. LEVOTHROID [Concomitant]
     Dosage: UNK

REACTIONS (7)
  - ARTHRITIS [None]
  - DIVERTICULITIS [None]
  - FATIGUE [None]
  - HYPERTENSION [None]
  - PALMAR-PLANTAR ERYTHRODYSAESTHESIA SYNDROME [None]
  - RECTAL HAEMORRHAGE [None]
  - THYROID DISORDER [None]
